FAERS Safety Report 10089849 (Version 1)
Quarter: 2014Q2

REPORT INFORMATION
  Report Type: Report from Study
  Country: US (occurrence: US)
  Receive Date: 20140421
  Receipt Date: 20140421
  Transmission Date: 20141212
  Serious: No
  Sender: FDA-Public Use
  Company Number: US-ABBVIE-13P-163-1087453-00

PATIENT
  Age: 4 Year
  Sex: 0

DRUGS (2)
  1. LUPRON DEPOT-PED (3 MONTH) [Suspect]
     Indication: PRODUCT USED FOR UNKNOWN INDICATION
  2. QVAR [Concomitant]
     Indication: ASTHMA
     Route: 055

REACTIONS (3)
  - Injection site erythema [Recovered/Resolved]
  - Injection site nodule [Not Recovered/Not Resolved]
  - Hypersensitivity [Unknown]
